FAERS Safety Report 7258430-9 (Version None)
Quarter: 2011Q1

REPORT INFORMATION
  Report Type: 
  Country: None (occurrence: None)
  Receive Date: 20110129
  Receipt Date: 20100831
  Transmission Date: 20110831
  Serious: No
  Sender: FDA-Public Use
  Company Number: US-ABBOTT-10P-163-0668775-00

PATIENT
  Weight: 76.272 kg

DRUGS (6)
  1. DYAZIDE [Concomitant]
     Indication: HYPERTENSION
  2. ALTACE [Concomitant]
     Indication: HYPERTENSION
  3. HUMIRA [Suspect]
     Indication: CROHN'S DISEASE
     Dates: start: 20100830
  4. LIPITOR [Concomitant]
     Indication: BLOOD CHOLESTEROL INCREASED
  5. CELEBREX [Concomitant]
     Indication: OSTEOARTHRITIS
  6. HYDROCODONE [Concomitant]
     Indication: ARTHRALGIA

REACTIONS (4)
  - WHEEZING [None]
  - JOINT SWELLING [None]
  - OEDEMA PERIPHERAL [None]
  - URINE OUTPUT DECREASED [None]
